FAERS Safety Report 23104637 (Version 3)
Quarter: 2023Q4

REPORT INFORMATION
  Report Type: Report from Study
  Country: US (occurrence: US)
  Receive Date: 20231025
  Receipt Date: 20231218
  Transmission Date: 20240110
  Serious: Yes (Other)
  Sender: FDA-Public Use
  Company Number: US-DECIPHERA PHARMACEUTICALS LLC-2023US000954

PATIENT
  Age: 59 Year
  Sex: Female

DRUGS (3)
  1. QINLOCK [Suspect]
     Active Substance: RIPRETINIB
     Indication: Gastrointestinal stromal tumour
     Dosage: 100 MILLIGRAM, QD, 100MG DAILY FOR 6 WEEKS ON, 6 WEEKS OFF
     Route: 048
     Dates: start: 20221004
  2. QINLOCK [Suspect]
     Active Substance: RIPRETINIB
     Dosage: 100 MILLIGRAM, QD, 100MG DAILY FOR 6 WEEKS ON, 6 WEEKS OFF
     Route: 048
  3. QINLOCK [Suspect]
     Active Substance: RIPRETINIB
     Dosage: 100 MILLIGRAM, QD, 100MG DAILY FOR 6 WEEKS ON, 2 WEEKS OFF
     Route: 048

REACTIONS (8)
  - Malignant neoplasm progression [Not Recovered/Not Resolved]
  - Thoracic vertebral fracture [Unknown]
  - Road traffic accident [Unknown]
  - Cancer pain [Unknown]
  - Blood pressure increased [Unknown]
  - Asthenia [Unknown]
  - Inappropriate schedule of product administration [Unknown]
  - Product dose omission in error [Unknown]

NARRATIVE: CASE EVENT DATE: 20230922
